FAERS Safety Report 4536113-3 (Version None)
Quarter: 2004Q4

REPORT INFORMATION
  Report Type: 
  Country: None (occurrence: None)
  Receive Date: 20041220
  Receipt Date: 20041213
  Transmission Date: 20050328
  Serious: Yes (Other)
  Sender: FDA-Public Use
  Company Number: 2004110582

PATIENT
  Sex: Female

DRUGS (5)
  1. LIPITOR [Suspect]
     Indication: ILL-DEFINED DISORDER
     Dosage: 10 MG (10 MG, 1 IN 1 D), ORAL
     Route: 048
     Dates: start: 20041101
  2. IPRATROPIUM BROMIDE [Concomitant]
  3. SALBUTAMOL (SALBUTAMOL) [Concomitant]
  4. ALENDRONATE SODIUM [Concomitant]
  5. BUMETANIDE [Concomitant]

REACTIONS (2)
  - ARTHRALGIA [None]
  - PULMONARY HYPERTENSION [None]
